FAERS Safety Report 10063008 (Version 2)
Quarter: 2014Q2

REPORT INFORMATION
  Report Type: Spontaneous
  Country: US (occurrence: US)
  Receive Date: 20140407
  Receipt Date: 20140407
  Transmission Date: 20141212
  Serious: Yes (Hospitalization, Other)
  Sender: FDA-Public Use
  Company Number: US201104002767

PATIENT
  Age: 71 Year
  Sex: Male
  Weight: 122.45 kg

DRUGS (18)
  1. BYETTA PEN DISPOSABLE [Suspect]
     Dates: end: 20080818
  2. BYETTA PEN DISPOSABLE [Suspect]
     Route: 058
     Dates: start: 20060317
  3. MOBIC [Concomitant]
  4. ZOCOR [Concomitant]
  5. NEXIUM [Concomitant]
  6. AVANDARYL [Concomitant]
  7. ASPIRIN [Concomitant]
  8. METFORMIN [Concomitant]
  9. DOCUSATE SODIUM [Concomitant]
  10. ZYRTEC [Concomitant]
  11. XALATAN [Concomitant]
  12. VERAMYST [Concomitant]
  13. AMITRIPTYLINE [Concomitant]
  14. LOTREL [Concomitant]
     Dosage: 1DF: 520 UNITS NOS
  15. HYZAAR [Concomitant]
     Dosage: 1DF: 100/25 UNITS NOS
  16. TORASEMIDE [Concomitant]
     Dosage: 1DF: 20 UNITS NOS
  17. MULTIVITAMIN [Concomitant]
  18. BABY ASPIRIN [Concomitant]

REACTIONS (8)
  - Cholecystitis acute [Recovered/Resolved]
  - Cholecystitis chronic [Recovered/Resolved]
  - Pancreatitis acute [Recovering/Resolving]
  - Renal failure acute [Recovered/Resolved]
  - Dehydration [Recovered/Resolved]
  - Weight decreased [Unknown]
  - Depression [Unknown]
  - Anxiety [Unknown]
